FAERS Safety Report 4754625-4 (Version None)
Quarter: 2005Q3

REPORT INFORMATION
  Report Type: 
  Country: None (occurrence: None)
  Receive Date: 20050829
  Receipt Date: 20050808
  Transmission Date: 20060218
  Serious: Yes (Other)
  Sender: FDA-Public Use
  Company Number: GR-GLAXOSMITHKLINE-B0390382A

PATIENT
  Age: 30 Year
  Sex: Female

DRUGS (8)
  1. LAMIVUDINE [Suspect]
     Indication: TROPICAL SPASTIC PARESIS
     Route: 048
  2. ZIDOVUDINE [Suspect]
     Indication: TROPICAL SPASTIC PARESIS
     Route: 048
  3. METHOTREXATE [Concomitant]
     Indication: TROPICAL SPASTIC PARESIS
     Route: 065
  4. CYTARABINE [Concomitant]
     Indication: TROPICAL SPASTIC PARESIS
     Route: 065
  5. CYCLOPHOSPHAMIDE [Concomitant]
     Indication: TROPICAL SPASTIC PARESIS
     Route: 065
  6. VINCRISTINE [Concomitant]
     Indication: TROPICAL SPASTIC PARESIS
     Route: 065
  7. ADRIAMYCIN PFS [Concomitant]
     Indication: TROPICAL SPASTIC PARESIS
     Route: 065
  8. DEXAMETHASONE [Concomitant]
     Indication: TROPICAL SPASTIC PARESIS
     Route: 065

REACTIONS (2)
  - INFECTION [None]
  - NEUTROPENIA [None]
